FAERS Safety Report 6854939-8 (Version None)
Quarter: 2010Q3

REPORT INFORMATION
  Report Type: 
  Country: None (occurrence: None)
  Receive Date: 20100717
  Receipt Date: 20080324
  Transmission Date: 20110219
  Serious: No
  Sender: FDA-Public Use
  Company Number: US-PFIZER INC-2007098772

PATIENT
  Sex: Female
  Weight: 89.4 kg

DRUGS (7)
  1. CHANTIX [Suspect]
     Indication: SMOKING CESSATION THERAPY
     Route: 048
     Dates: start: 20071110
  2. LYRICA [Concomitant]
  3. ALL OTHER THERAPEUTIC PRODUCTS [Concomitant]
  4. PRILOSEC [Concomitant]
  5. PROMETHAZINE [Concomitant]
  6. TYLENOL PM [Concomitant]
  7. VICODIN [Concomitant]

REACTIONS (3)
  - ALCOHOL USE [None]
  - CAFFEINE CONSUMPTION [None]
  - TOBACCO USER [None]
